FAERS Safety Report 9745135 (Version 1)
Quarter: 2013Q4

REPORT INFORMATION
  Report Type: Report from Study
  Country: US (occurrence: US)
  Receive Date: 20131211
  Receipt Date: 20131211
  Transmission Date: 20140711
  Serious: Yes (Death)
  Sender: FDA-Public Use
  Company Number: US-ROCHE-1308548

PATIENT
  Sex: Male

DRUGS (3)
  1. AVASTIN [Suspect]
     Indication: COLON CANCER
     Route: 042
     Dates: start: 20120803, end: 20120803
  2. AVASTIN [Suspect]
     Route: 042
     Dates: start: 20120817, end: 20120817
  3. AVASTIN [Suspect]
     Route: 042
     Dates: start: 20120831, end: 20120831

REACTIONS (1)
  - Death [Fatal]
